FAERS Safety Report 5106936-0 (Version None)
Quarter: 2006Q3

REPORT INFORMATION
  Report Type: 
  Country: None (occurrence: None)
  Receive Date: 20060918
  Receipt Date: 20060907
  Transmission Date: 20061208
  Serious: Yes (Other)
  Sender: FDA-Public Use
  Company Number: FR-BOEHRINGER INGELHEIM PHARMACEUTICALS, INC.-2006-DE-04797GD

PATIENT
  Age: 50 Year
  Sex: Female

DRUGS (4)
  1. PREDNISONE [Suspect]
     Indication: PEMPHIGUS
     Dosage: MORE THAN 20 MG/D
     Route: 048
  2. AZATHIOPRINE [Suspect]
     Indication: PEMPHIGUS
  3. CYCLOSPORINE [Suspect]
     Indication: PEMPHIGUS
  4. POLYVALENT IMMUNOGLOBULINS [Suspect]
     Indication: PEMPHIGUS
     Dosage: 17 COURSES

REACTIONS (1)
  - DRUG INEFFECTIVE [None]
